FAERS Safety Report 10494715 (Version 1)
Quarter: 2014Q4

REPORT INFORMATION
  Report Type: Spontaneous
  Country: US (occurrence: US)
  Receive Date: 20141003
  Receipt Date: 20141003
  Transmission Date: 20150528
  Serious: No
  Sender: FDA-Public Use
  Company Number: US-ELI_LILLY_AND_COMPANY-US201409008122

PATIENT
  Sex: Female

DRUGS (2)
  1. HUMULIN N [Suspect]
     Active Substance: INSULIN HUMAN
     Indication: TYPE 2 DIABETES MELLITUS
     Dosage: 70 DF, EACH MORNING
     Route: 065
     Dates: start: 1994
  2. HUMULIN N [Suspect]
     Active Substance: INSULIN HUMAN
     Dosage: 30 DF, EACH EVENING
     Route: 065
     Dates: start: 1994

REACTIONS (1)
  - Cataract [Unknown]
